FAERS Safety Report 5019912-3 (Version None)
Quarter: 2006Q2

REPORT INFORMATION
  Report Type: 
  Country: None (occurrence: None)
  Receive Date: 20060607
  Receipt Date: 20060601
  Transmission Date: 20061013
  Serious: Yes (Hospitalization)
  Sender: FDA-Public Use
  Company Number: US-GILEAD-2006-0009679

PATIENT
  Age: 41 Year
  Sex: Male
  Weight: 78.996 kg

DRUGS (7)
  1. BLINDED EMTRICITABINE/TENOFOVIR DF [Suspect]
     Indication: HIV INFECTION
     Route: 048
     Dates: start: 20060223
  2. ATAZANAVIR [Suspect]
     Indication: HIV INFECTION
     Route: 048
     Dates: start: 20060223
  3. RITONAVIR [Suspect]
     Indication: HIV INFECTION
     Route: 048
  4. BLINDED ABACAVIR/LAMIVUDINE [Suspect]
     Indication: HIV INFECTION
     Route: 048
  5. BACTRIM DS [Concomitant]
     Route: 048
  6. PREDNISONE [Concomitant]
     Route: 048
  7. ZANTAC [Concomitant]
     Route: 048

REACTIONS (1)
  - STATUS EPILEPTICUS [None]
